FAERS Safety Report 23395533 (Version 3)
Quarter: 2024Q1

REPORT INFORMATION
  Report Type: Spontaneous
  Country: GB (occurrence: GB)
  Receive Date: 20240112
  Receipt Date: 20240208
  Transmission Date: 20240410
  Serious: Yes (Death)
  Sender: FDA-Public Use
  Company Number: None

PATIENT
  Age: 63 Year
  Sex: Male

DRUGS (4)
  1. ETANERCEPT [Suspect]
     Active Substance: ETANERCEPT
     Indication: Rheumatoid arthritis
     Dosage: 50MG ONCE WEEKLY; ;
     Route: 065
     Dates: start: 20220526, end: 20220926
  2. HYDROXYCHLOROQUINE [Concomitant]
     Active Substance: HYDROXYCHLOROQUINE
     Indication: Adverse drug reaction
     Dosage: UNK
     Route: 065
     Dates: start: 20200122, end: 20221124
  3. HYDROXYCHLOROQUINE [Concomitant]
     Active Substance: HYDROXYCHLOROQUINE
     Indication: Rheumatoid arthritis
  4. PREDNISOLONE [Concomitant]
     Active Substance: PREDNISOLONE
     Indication: Product used for unknown indication
     Dosage: 10 - 30MG
     Route: 065
     Dates: start: 202201

REACTIONS (12)
  - Pulmonary mass [Fatal]
  - Arthritis [Unknown]
  - Cough [Not Recovered/Not Resolved]
  - Pneumothorax [Not Recovered/Not Resolved]
  - Rheumatoid nodule [Not Recovered/Not Resolved]
  - Weight decreased [Unknown]
  - Respiratory tract inflammation [Unknown]
  - Infection [Not Recovered/Not Resolved]
  - Malaise [Unknown]
  - Abnormal loss of weight [Not Recovered/Not Resolved]
  - Pleurisy [Not Recovered/Not Resolved]
  - Tracheal inflammation [Not Recovered/Not Resolved]

NARRATIVE: CASE EVENT DATE: 20220701
